FAERS Safety Report 8457419-1 (Version None)
Quarter: 2012Q2

REPORT INFORMATION
  Report Type: 
  Country: None (occurrence: None)
  Receive Date: 20120621
  Receipt Date: 20120608
  Transmission Date: 20120825
  Serious: Yes (Other)
  Sender: FDA-Public Use
  Company Number: US-ALLERGAN-1206916US

PATIENT
  Age: 53 Year
  Sex: Female

DRUGS (3)
  1. LATISSE [Suspect]
     Indication: GROWTH OF EYELASHES
     Dosage: 2 GTT, UNK
     Route: 061
  2. ARTIFICIAL TEARS                   /00445101/ [Concomitant]
     Indication: DRY EYE
  3. RESTASIS [Suspect]
     Indication: DRY EYE
     Dosage: 2 GTT, BID
     Route: 047

REACTIONS (2)
  - EYELID BLEEDING [None]
  - UPPER RESPIRATORY TRACT INFECTION [None]
